FAERS Safety Report 10540103 (Version 2)
Quarter: 2014Q4

REPORT INFORMATION
  Report Type: Spontaneous
  Country: US (occurrence: US)
  Receive Date: 20141024
  Receipt Date: 20141106
  Transmission Date: 20150529
  Serious: Yes (Death, Other)
  Sender: FDA-Public Use
  Company Number: US-BEH-2014045700

PATIENT
  Age: 12 Year
  Sex: Male

DRUGS (1)
  1. HIZENTRA [Suspect]
     Active Substance: HUMAN IMMUNOGLOBULIN G
     Dosage: 20% SOLUTION;PARENTERAL
     Dates: start: 20141006, end: 20141006

REACTIONS (6)
  - Respiratory distress [Unknown]
  - Abdominal distension [Unknown]
  - Hospice care [Unknown]
  - Urinary retention [Unknown]
  - Malaise [Unknown]
  - Death [Fatal]

NARRATIVE: CASE EVENT DATE: 201410
